FAERS Safety Report 19210421 (Version 1)
Quarter: 2021Q2

REPORT INFORMATION
  Report Type: Spontaneous
  Country: US (occurrence: US)
  Receive Date: 20210504
  Receipt Date: 20210504
  Transmission Date: 20210717
  Serious: No
  Sender: FDA-Public Use
  Company Number: US-TEVA-2021-US-1905170

PATIENT
  Sex: Female

DRUGS (2)
  1. VENLAFAXINE HYDROCHLORIDE. [Suspect]
     Active Substance: VENLAFAXINE HYDROCHLORIDE
     Route: 065
  2. VENLAFAXINE HYDROCHLORIDE. [Suspect]
     Active Substance: VENLAFAXINE HYDROCHLORIDE
     Dosage: EXTENDED CAPSULE/HAS BEEN ON THE PRODUCT FOR A COUPLE YEARS
     Route: 065

REACTIONS (6)
  - Blood cholesterol increased [Not Recovered/Not Resolved]
  - Vision blurred [Not Recovered/Not Resolved]
  - Feeling jittery [Not Recovered/Not Resolved]
  - Depression [Not Recovered/Not Resolved]
  - Feeling abnormal [Not Recovered/Not Resolved]
  - Blood pressure increased [Not Recovered/Not Resolved]
